FAERS Safety Report 9027922 (Version 1)
Quarter: 2013Q1

REPORT INFORMATION
  Report Type: Spontaneous
  Country: US (occurrence: None)
  Receive Date: 20130114
  Receipt Date: 20130114
  Transmission Date: 20140127
  Serious: Yes (Other)
  Sender: FDA-Public Use
  Company Number: None

PATIENT
  Sex: Male
  Weight: 131.54 kg

DRUGS (1)
  1. ADDERALL XR [Suspect]
     Indication: PRODUCT SUBSTITUTION ISSUE
     Dosage: 30MG 2 QD PO
     Route: 048
     Dates: start: 200906

REACTIONS (3)
  - Vision blurred [None]
  - Alopecia [None]
  - Drug effect decreased [None]
